FAERS Safety Report 6152200-0 (Version None)
Quarter: 2009Q2

REPORT INFORMATION
  Report Type: 
  Country: None (occurrence: None)
  Receive Date: 20090410
  Receipt Date: 20081120
  Transmission Date: 20091009
  Serious: No
  Sender: FDA-Public Use
  Company Number: US-ASTRAZENECA-2008UW26019

PATIENT
  Age: 50 Year
  Sex: Female

DRUGS (1)
  1. ATENOLOL [Suspect]
     Dosage: 100 MG
     Route: 048

REACTIONS (1)
  - BLOOD PRESSURE INADEQUATELY CONTROLLED [None]
